FAERS Safety Report 7730336-8 (Version None)
Quarter: 2011Q3

REPORT INFORMATION
  Report Type: 
  Country: None (occurrence: None)
  Receive Date: 20110901
  Receipt Date: 20110901
  Transmission Date: 20111222
  Serious: Yes (Other)
  Sender: FDA-Public Use
  Company Number: None

PATIENT
  Sex: Male
  Weight: 94.8018 kg

DRUGS (1)
  1. QUETIAPINE [Suspect]
     Dosage: 1 PILL QUIT
     Dates: start: 20110714, end: 20110810

REACTIONS (6)
  - OROPHARYNGEAL PAIN [None]
  - PYREXIA [None]
  - ANXIETY [None]
  - DRY MOUTH [None]
  - MOOD ALTERED [None]
  - DIZZINESS [None]
